APPROVED DRUG PRODUCT: PLASMA-LYTE 148 AND DEXTROSE 5% IN PLASTIC CONTAINER
Active Ingredient: DEXTROSE; MAGNESIUM CHLORIDE; POTASSIUM CHLORIDE; SODIUM ACETATE; SODIUM CHLORIDE; SODIUM GLUCONATE
Strength: 5GM/100ML;30MG/100ML;37MG/100ML;368MG/100ML;526MG/100ML;502MG/100ML
Dosage Form/Route: INJECTABLE;INJECTION
Application: N017451 | Product #001
Applicant: BAXTER HEALTHCARE CORP
Approved: Approved Prior to Jan 1, 1982 | RLD: Yes | RS: No | Type: DISCN